FAERS Safety Report 9889670 (Version 2)
Quarter: 2014Q1

REPORT INFORMATION
  Report Type: Report from Study
  Country: FR (occurrence: FR)
  Receive Date: 20140211
  Receipt Date: 20140313
  Transmission Date: 20141002
  Serious: Yes (Hospitalization)
  Sender: FDA-Public Use
  Company Number: FR-PFIZER INC-2014031938

PATIENT
  Age: 51 Year
  Sex: Male
  Weight: 101 kg

DRUGS (10)
  1. AXITINIB [Suspect]
     Indication: COLORECTAL CANCER METASTATIC
     Dosage: 5 MG, 2X/DAY FOR 7 CONSECUTIVE DAYS THEN STOPPED
     Route: 048
     Dates: start: 20130429, end: 20130512
  2. AXITINIB [Suspect]
     Dosage: 7 MG, 2X/DAY FOR SEVEN CONSECUTIVE DAYS THEN STOPPED
     Route: 048
     Dates: start: 20130514, end: 20130527
  3. AXITINIB [Suspect]
     Dosage: 10 MG, 2X/DAY FOR SEVEN CONSECUTIVE DAYS THEN STOPPED
     Route: 048
     Dates: start: 20130527, end: 20130614
  4. AXITINIB [Suspect]
     Dosage: 10 MG, 2X/DAY CONTINUOUSLY
     Route: 048
     Dates: start: 20130614, end: 20130712
  5. AXITINIB [Suspect]
     Dosage: 7 MG, 2X/DAY CONTINUOUSLY
     Route: 048
     Dates: start: 20130712, end: 20131220
  6. AXITINIB [Suspect]
     Dosage: 5 MG, 2X/DAY CONTINUOUSLY
     Route: 048
     Dates: start: 20131220, end: 20131230
  7. CAMPTO [Suspect]
     Indication: COLORECTAL CANCER METASTATIC
     Dosage: 360 MG, EVERY 14 DAYS
     Dates: start: 20131011, end: 20131220
  8. FLUOROURACIL [Suspect]
     Indication: COLORECTAL CANCER METASTATIC
     Dosage: 800 MG, EVERY 14 DAYS
     Route: 040
     Dates: start: 20131011, end: 20131220
  9. FLUOROURACIL [Suspect]
     Dosage: 4800 MG, EVERY 14 DAYS
     Route: 041
     Dates: start: 20131011, end: 20131220
  10. FOLINIC ACID [Suspect]
     Indication: COLORECTAL CANCER METASTATIC
     Dosage: UNK

REACTIONS (2)
  - Subileus [Unknown]
  - Anal fissure [Unknown]
